FAERS Safety Report 5581719-6 (Version None)
Quarter: 2008Q1

REPORT INFORMATION
  Report Type: 
  Country: None (occurrence: None)
  Receive Date: 20080104
  Receipt Date: 20080103
  Transmission Date: 20080703
  Serious: Yes (Other)
  Sender: FDA-Public Use
  Company Number: FR-JNJFOC-20071107676

PATIENT
  Sex: Male
  Weight: 35 kg

DRUGS (1)
  1. CONCERTA [Suspect]
     Indication: ATTENTION DEFICIT/HYPERACTIVITY DISORDER
     Route: 048

REACTIONS (6)
  - ANOREXIA [None]
  - ASTHENIA [None]
  - GASTROINTESTINAL DISORDER [None]
  - HEADACHE [None]
  - PYREXIA [None]
  - SLEEP DISORDER [None]
